FAERS Safety Report 6276016-X (Version None)
Quarter: 2009Q3

REPORT INFORMATION
  Report Type: 
  Country: None (occurrence: None)
  Receive Date: 20090720
  Receipt Date: 20090705
  Transmission Date: 20100115
  Serious: Yes (Hospitalization)
  Sender: FDA-Public Use
  Company Number: 8048745

PATIENT
  Age: 46 Year
  Sex: Female
  Weight: 69.9 kg

DRUGS (6)
  1. CDP870 [Suspect]
     Indication: RHEUMATOID ARTHRITIS
     Dosage: 400 MG 1/2W; SC
     Route: 058
     Dates: start: 20051220, end: 20071204
  2. CDP870 [Suspect]
     Indication: RHEUMATOID ARTHRITIS
     Dosage: 200 MG 1/2W; SC
     Route: 059
     Dates: start: 20071218
  3. METHOTHREXATE [Concomitant]
  4. DICLOFENAC [Concomitant]
  5. FOLIC ACID [Concomitant]
  6. TRAVOPROST [Concomitant]

REACTIONS (3)
  - ARTHRALGIA [None]
  - HERPES ZOSTER [None]
  - PNEUMONIA [None]
